FAERS Safety Report 12625445 (Version 8)
Quarter: 2025Q4

REPORT INFORMATION
  Report Type: Spontaneous
  Country: EU (occurrence: EU)
  Receive Date: 20160805
  Receipt Date: 20251029
  Transmission Date: 20260117
  Serious: Yes (Hospitalization, Other)
  Sender: MYLAN
  Company Number: EU-PFIZER INC-2016363876

PATIENT
  Age: 65 Year
  Sex: Male

DRUGS (76)
  1. TAHOR [Suspect]
     Active Substance: ATORVASTATIN CALCIUM
     Indication: Product used for unknown indication
     Dosage: 10 MG, 1X/DAY REGIMEN DOSE UNIT: MILLIGRAM
  2. TAHOR [Suspect]
     Active Substance: ATORVASTATIN CALCIUM
     Dosage: 10 MG, 1X/DAY REGIMEN DOSE UNIT: MILLIGRAM
     Route: 048
  3. TAHOR [Suspect]
     Active Substance: ATORVASTATIN CALCIUM
     Dosage: 10 MG, 1X/DAY REGIMEN DOSE UNIT: MILLIGRAM
     Route: 048
  4. TAHOR [Suspect]
     Active Substance: ATORVASTATIN CALCIUM
     Dosage: 10 MG, 1X/DAY REGIMEN DOSE UNIT: MILLIGRAM
  5. PANTOPRAZOLE [Suspect]
     Active Substance: PANTOPRAZOLE
     Indication: Product used for unknown indication
     Dosage: 40 MG, 1X/DAY REGIMEN DOSE UNIT: MILLIGRAM
  6. PANTOPRAZOLE [Suspect]
     Active Substance: PANTOPRAZOLE
     Dosage: 40 MG, 1X/DAY REGIMEN DOSE UNIT: MILLIGRAM
     Route: 048
  7. PANTOPRAZOLE [Suspect]
     Active Substance: PANTOPRAZOLE
     Dosage: 40 MG, 1X/DAY REGIMEN DOSE UNIT: MILLIGRAM
     Route: 048
  8. PANTOPRAZOLE [Suspect]
     Active Substance: PANTOPRAZOLE
     Dosage: 40 MG, 1X/DAY REGIMEN DOSE UNIT: MILLIGRAM
  9. FUROSEMIDE [Suspect]
     Active Substance: FUROSEMIDE
     Indication: Product used for unknown indication
     Dosage: 20 MG, 1X/DAY REGIMEN DOSE UNIT: MILLIGRAM
     Dates: end: 20160715
  10. FUROSEMIDE [Suspect]
     Active Substance: FUROSEMIDE
     Dosage: 20 MG, 1X/DAY REGIMEN DOSE UNIT: MILLIGRAM
     Route: 048
     Dates: end: 20160715
  11. FUROSEMIDE [Suspect]
     Active Substance: FUROSEMIDE
     Dosage: 20 MG, 1X/DAY REGIMEN DOSE UNIT: MILLIGRAM
     Route: 048
     Dates: end: 20160715
  12. FUROSEMIDE [Suspect]
     Active Substance: FUROSEMIDE
     Dosage: 20 MG, 1X/DAY REGIMEN DOSE UNIT: MILLIGRAM
     Dates: end: 20160715
  13. SPIRIVA [Suspect]
     Active Substance: TIOTROPIUM BROMIDE MONOHYDRATE
     Indication: Product used for unknown indication
     Dosage: UNK
  14. SPIRIVA [Suspect]
     Active Substance: TIOTROPIUM BROMIDE MONOHYDRATE
     Dosage: UNK
     Route: 055
  15. SPIRIVA [Suspect]
     Active Substance: TIOTROPIUM BROMIDE MONOHYDRATE
     Dosage: UNK
     Route: 055
  16. SPIRIVA [Suspect]
     Active Substance: TIOTROPIUM BROMIDE MONOHYDRATE
     Dosage: UNK
  17. CYAMEMAZINE [Suspect]
     Active Substance: CYAMEMAZINE
     Indication: Product used for unknown indication
     Dosage: 25 MG, 1X/DAY REGIMEN DOSE UNIT: MILLIGRAM
  18. CYAMEMAZINE [Suspect]
     Active Substance: CYAMEMAZINE
     Dosage: 25 MG, 1X/DAY REGIMEN DOSE UNIT: MILLIGRAM
     Route: 048
  19. CYAMEMAZINE [Suspect]
     Active Substance: CYAMEMAZINE
     Dosage: 25 MG, 1X/DAY REGIMEN DOSE UNIT: MILLIGRAM
     Route: 048
  20. CYAMEMAZINE [Suspect]
     Active Substance: CYAMEMAZINE
     Dosage: 25 MG, 1X/DAY REGIMEN DOSE UNIT: MILLIGRAM
  21. AMITRIPTYLINE HYDROCHLORIDE [Suspect]
     Active Substance: AMITRIPTYLINE HYDROCHLORIDE
     Indication: Product used for unknown indication
     Dosage: 75 MG, 1X/DAY REGIMEN DOSE UNIT: MILLIGRAM
  22. AMITRIPTYLINE HYDROCHLORIDE [Suspect]
     Active Substance: AMITRIPTYLINE HYDROCHLORIDE
     Dosage: 75 MG, 1X/DAY REGIMEN DOSE UNIT: MILLIGRAM
     Route: 048
  23. AMITRIPTYLINE HYDROCHLORIDE [Suspect]
     Active Substance: AMITRIPTYLINE HYDROCHLORIDE
     Dosage: 75 MG, 1X/DAY REGIMEN DOSE UNIT: MILLIGRAM
     Route: 048
  24. AMITRIPTYLINE HYDROCHLORIDE [Suspect]
     Active Substance: AMITRIPTYLINE HYDROCHLORIDE
     Dosage: 75 MG, 1X/DAY REGIMEN DOSE UNIT: MILLIGRAM
  25. TRAMADOL [Suspect]
     Active Substance: TRAMADOL
     Indication: Product used for unknown indication
     Dosage: 200 MG, 2X/DAY (IN THE MORNING AND IN THE EVENING) REGIMEN DOSE UNIT: MILLIGRAM (400 MG, QD)
  26. TRAMADOL [Suspect]
     Active Substance: TRAMADOL
     Dosage: 200 MG, 2X/DAY (IN THE MORNING AND IN THE EVENING) REGIMEN DOSE UNIT: MILLIGRAM (400 MG, QD)
  27. TRAMADOL [Suspect]
     Active Substance: TRAMADOL
     Dosage: 200 MG, 2X/DAY (IN THE MORNING AND IN THE EVENING) REGIMEN DOSE UNIT: MILLIGRAM (400 MG, QD)
     Route: 048
  28. TRAMADOL [Suspect]
     Active Substance: TRAMADOL
     Dosage: 200 MG, 2X/DAY (IN THE MORNING AND IN THE EVENING) REGIMEN DOSE UNIT: MILLIGRAM (400 MG, QD)
     Route: 048
  29. TRAMADOL [Suspect]
     Active Substance: TRAMADOL
     Dosage: 50 MG, 3X/DAY REGIMEN DOSE UNIT: MILLIGRAM (150 MG, QD)
  30. TRAMADOL [Suspect]
     Active Substance: TRAMADOL
     Dosage: 50 MG, 3X/DAY REGIMEN DOSE UNIT: MILLIGRAM (150 MG, QD)
  31. TRAMADOL [Suspect]
     Active Substance: TRAMADOL
     Dosage: 50 MG, 3X/DAY REGIMEN DOSE UNIT: MILLIGRAM (150 MG, QD)
     Route: 048
  32. TRAMADOL [Suspect]
     Active Substance: TRAMADOL
     Dosage: 50 MG, 3X/DAY REGIMEN DOSE UNIT: MILLIGRAM (150 MG, QD)
     Route: 048
  33. ARIPIPRAZOLE [Suspect]
     Active Substance: ARIPIPRAZOLE
     Indication: Product used for unknown indication
     Dosage: 10 MG, 1X/DAY REGIMEN DOSE UNIT: MILLIGRAM
  34. ARIPIPRAZOLE [Suspect]
     Active Substance: ARIPIPRAZOLE
     Dosage: 10 MG, 1X/DAY REGIMEN DOSE UNIT: MILLIGRAM
     Route: 048
  35. ARIPIPRAZOLE [Suspect]
     Active Substance: ARIPIPRAZOLE
     Dosage: 10 MG, 1X/DAY REGIMEN DOSE UNIT: MILLIGRAM
     Route: 048
  36. ARIPIPRAZOLE [Suspect]
     Active Substance: ARIPIPRAZOLE
     Dosage: 10 MG, 1X/DAY REGIMEN DOSE UNIT: MILLIGRAM
  37. CLOPIDOGREL [Suspect]
     Active Substance: CLOPIDOGREL BISULFATE
     Indication: Product used for unknown indication
     Dosage: UNK
  38. CLOPIDOGREL [Suspect]
     Active Substance: CLOPIDOGREL BISULFATE
     Dosage: UNK
     Route: 065
  39. CLOPIDOGREL [Suspect]
     Active Substance: CLOPIDOGREL BISULFATE
     Dosage: UNK
     Route: 065
  40. CLOPIDOGREL [Suspect]
     Active Substance: CLOPIDOGREL BISULFATE
     Dosage: UNK
  41. KARDEGIC [Suspect]
     Active Substance: ASPIRIN DL-LYSINE
     Indication: Product used for unknown indication
     Dosage: UNK
  42. KARDEGIC [Suspect]
     Active Substance: ASPIRIN DL-LYSINE
     Dosage: UNK
     Route: 065
  43. KARDEGIC [Suspect]
     Active Substance: ASPIRIN DL-LYSINE
     Dosage: UNK
     Route: 065
  44. KARDEGIC [Suspect]
     Active Substance: ASPIRIN DL-LYSINE
     Dosage: UNK
  45. PHENOBARBITAL [Suspect]
     Active Substance: PHENOBARBITAL
     Indication: Product used for unknown indication
     Dosage: 150 MG, 1X/DAY REGIMEN DOSE UNIT: MILLIGRAM
  46. PHENOBARBITAL [Suspect]
     Active Substance: PHENOBARBITAL
     Dosage: 150 MG, 1X/DAY REGIMEN DOSE UNIT: MILLIGRAM
     Route: 048
  47. PHENOBARBITAL [Suspect]
     Active Substance: PHENOBARBITAL
     Dosage: 150 MG, 1X/DAY REGIMEN DOSE UNIT: MILLIGRAM
     Route: 048
  48. PHENOBARBITAL [Suspect]
     Active Substance: PHENOBARBITAL
     Dosage: 150 MG, 1X/DAY REGIMEN DOSE UNIT: MILLIGRAM
  49. ESTAZOLAM [Suspect]
     Active Substance: ESTAZOLAM
     Indication: Product used for unknown indication
     Dosage: 2 MG, 1X/DAY REGIMEN DOSE UNIT: MILLIGRAM
  50. ESTAZOLAM [Suspect]
     Active Substance: ESTAZOLAM
     Dosage: 2 MG, 1X/DAY REGIMEN DOSE UNIT: MILLIGRAM
     Route: 048
  51. ESTAZOLAM [Suspect]
     Active Substance: ESTAZOLAM
     Dosage: 2 MG, 1X/DAY REGIMEN DOSE UNIT: MILLIGRAM
     Route: 048
  52. ESTAZOLAM [Suspect]
     Active Substance: ESTAZOLAM
     Dosage: 2 MG, 1X/DAY REGIMEN DOSE UNIT: MILLIGRAM
  53. DIAZEPAM [Suspect]
     Active Substance: DIAZEPAM
     Indication: Product used for unknown indication
     Dosage: 5 MG, 1X/DAY REGIMEN DOSE UNIT: MILLIGRAM
  54. DIAZEPAM [Suspect]
     Active Substance: DIAZEPAM
     Dosage: 5 MG, 1X/DAY REGIMEN DOSE UNIT: MILLIGRAM
     Route: 048
  55. DIAZEPAM [Suspect]
     Active Substance: DIAZEPAM
     Dosage: 5 MG, 1X/DAY REGIMEN DOSE UNIT: MILLIGRAM
     Route: 048
  56. DIAZEPAM [Suspect]
     Active Substance: DIAZEPAM
     Dosage: 5 MG, 1X/DAY REGIMEN DOSE UNIT: MILLIGRAM
  57. SILODOSIN [Suspect]
     Active Substance: SILODOSIN
     Indication: Product used for unknown indication
     Dosage: 8 MG, 1X/DAY REGIMEN DOSE UNIT: MILLIGRAM
  58. SILODOSIN [Suspect]
     Active Substance: SILODOSIN
     Dosage: 8 MG, 1X/DAY REGIMEN DOSE UNIT: MILLIGRAM
     Route: 048
  59. SILODOSIN [Suspect]
     Active Substance: SILODOSIN
     Dosage: 8 MG, 1X/DAY REGIMEN DOSE UNIT: MILLIGRAM
     Route: 048
  60. SILODOSIN [Suspect]
     Active Substance: SILODOSIN
     Dosage: 8 MG, 1X/DAY REGIMEN DOSE UNIT: MILLIGRAM
  61. TRIMEPRAZINE [Suspect]
     Active Substance: TRIMEPRAZINE
     Indication: Product used for unknown indication
     Dosage: 5 MG, 3X/DAY REGIMEN DOSE UNIT: MILLIGRAM
  62. TRIMEPRAZINE [Suspect]
     Active Substance: TRIMEPRAZINE
     Dosage: 5 MG, 3X/DAY REGIMEN DOSE UNIT: MILLIGRAM
     Route: 048
  63. TRIMEPRAZINE [Suspect]
     Active Substance: TRIMEPRAZINE
     Dosage: 5 MG, 3X/DAY REGIMEN DOSE UNIT: MILLIGRAM
     Route: 048
  64. TRIMEPRAZINE [Suspect]
     Active Substance: TRIMEPRAZINE
     Dosage: 5 MG, 3X/DAY REGIMEN DOSE UNIT: MILLIGRAM
  65. NITROGLYCERIN [Suspect]
     Active Substance: NITROGLYCERIN
     Indication: Product used for unknown indication
     Dosage: 1 DF, 1X/DAY REGIMEN DOSE UNIT: DOSAGE FORM
  66. NITROGLYCERIN [Suspect]
     Active Substance: NITROGLYCERIN
     Dosage: 1 DF, 1X/DAY REGIMEN DOSE UNIT: DOSAGE FORM
     Route: 003
  67. NITROGLYCERIN [Suspect]
     Active Substance: NITROGLYCERIN
     Dosage: 1 DF, 1X/DAY REGIMEN DOSE UNIT: DOSAGE FORM
     Route: 003
  68. NITROGLYCERIN [Suspect]
     Active Substance: NITROGLYCERIN
     Dosage: 1 DF, 1X/DAY REGIMEN DOSE UNIT: DOSAGE FORM
  69. FORADIL [Suspect]
     Active Substance: FORMOTEROL FUMARATE
     Indication: Product used for unknown indication
     Dosage: UNK
  70. FORADIL [Suspect]
     Active Substance: FORMOTEROL FUMARATE
     Dosage: UNK
     Route: 055
  71. FORADIL [Suspect]
     Active Substance: FORMOTEROL FUMARATE
     Dosage: UNK
     Route: 055
  72. FORADIL [Suspect]
     Active Substance: FORMOTEROL FUMARATE
     Dosage: UNK
  73. BISOPROLOL [Suspect]
     Active Substance: BISOPROLOL
     Indication: Product used for unknown indication
     Dosage: UNK
  74. BISOPROLOL [Suspect]
     Active Substance: BISOPROLOL
     Dosage: UNK
     Route: 048
  75. BISOPROLOL [Suspect]
     Active Substance: BISOPROLOL
     Dosage: UNK
     Route: 048
  76. BISOPROLOL [Suspect]
     Active Substance: BISOPROLOL
     Dosage: UNK

REACTIONS (6)
  - Hyponatraemia [Not Recovered/Not Resolved]
  - Inappropriate antidiuretic hormone secretion [Not Recovered/Not Resolved]
  - Paraneoplastic syndrome [Unknown]
  - Pulmonary mass [Unknown]
  - Chest pain [Unknown]
  - Dry mouth [Unknown]

NARRATIVE: CASE EVENT DATE: 20160714
